FAERS Safety Report 7764993-7 (Version None)
Quarter: 2011Q3

REPORT INFORMATION
  Report Type: 
  Country: None (occurrence: None)
  Receive Date: 20110921
  Receipt Date: 20110914
  Transmission Date: 20111222
  Serious: Yes (Hospitalization)
  Sender: FDA-Public Use
  Company Number: US-SANOFI-AVENTIS-2011SA055544

PATIENT

DRUGS (1)
  1. APIDRA [Suspect]
     Dosage: VIA PUMP
     Route: 058

REACTIONS (3)
  - BLOOD GLUCOSE ABNORMAL [None]
  - PRODUCT QUALITY ISSUE [None]
  - BACTERIAL INFECTION [None]
